FAERS Safety Report 5097786-2 (Version None)
Quarter: 2006Q3

REPORT INFORMATION
  Report Type: 
  Country: None (occurrence: None)
  Receive Date: 20060825
  Receipt Date: 20060810
  Transmission Date: 20061208
  Serious: Yes (Other)
  Sender: FDA-Public Use
  Company Number: USA-2006-0024879

PATIENT
  Sex: Male

DRUGS (4)
  1. OXYCODONE HCL [Suspect]
     Indication: BACK PAIN
     Dosage: 10 MG, TID, ORAL
     Route: 048
     Dates: start: 20060726
  2. DOXEPIN HCL [Concomitant]
  3. MECLIZINE [Concomitant]
  4. VALIUM [Concomitant]

REACTIONS (12)
  - ANXIETY [None]
  - CHEST PAIN [None]
  - CONDITION AGGRAVATED [None]
  - DRUG EFFECT DECREASED [None]
  - DRUG INEFFECTIVE [None]
  - DYSPNOEA [None]
  - FEAR [None]
  - HEADACHE [None]
  - POST-TRAUMATIC STRESS DISORDER [None]
  - RASH ERYTHEMATOUS [None]
  - SKIN CANCER [None]
  - THERAPEUTIC RESPONSE UNEXPECTED WITH DRUG SUBSTITUTION [None]
